FAERS Safety Report 16155898 (Version 1)
Quarter: 2019Q2

REPORT INFORMATION
  Report Type: Spontaneous
  Country: GB (occurrence: GB)
  Receive Date: 20190404
  Receipt Date: 20190404
  Transmission Date: 20190711
  Serious: Yes (Hospitalization)
  Sender: FDA-Public Use
  Company Number: GB-ACCORD-117613

PATIENT
  Age: 56 Year
  Sex: Female
  Weight: 69 kg

DRUGS (2)
  1. ELLESTE-SOLO [Concomitant]
     Indication: HORMONE REPLACEMENT THERAPY
     Route: 062
  2. ESCITALOPRAM [Suspect]
     Active Substance: ESCITALOPRAM OXALATE
     Indication: ANXIETY
     Route: 048

REACTIONS (2)
  - Bradyarrhythmia [Recovered/Resolved]
  - Circulatory collapse [Unknown]

NARRATIVE: CASE EVENT DATE: 20190110
